FAERS Safety Report 6263839-6 (Version None)
Quarter: 2009Q3

REPORT INFORMATION
  Report Type: 
  Country: None (occurrence: None)
  Receive Date: 20090710
  Receipt Date: 20090701
  Transmission Date: 20100115
  Serious: Yes (Hospitalization)
  Sender: FDA-Public Use
  Company Number: US-KINGPHARMUSA00001-K200900778

PATIENT
  Age: 85 Year
  Sex: Male

DRUGS (9)
  1. ALTACE [Suspect]
     Dosage: 10 MG, QD
     Route: 048
     Dates: end: 20090511
  2. KARDEGIC [Suspect]
     Dosage: 160 MG, QD
     Route: 048
  3. TEMERIT [Suspect]
     Dosage: 5 MG, QD
     Route: 048
  4. TAHOR [Suspect]
     Dosage: 10 MG, QD
     Route: 048
  5. NEXIUM [Suspect]
     Dosage: 20 MG, QD
     Route: 048
  6. LORAZEPAM [Suspect]
     Dosage: UNK
  7. LASIX [Concomitant]
     Dosage: UNK
     Dates: end: 20090512
  8. KALEORID [Concomitant]
     Dosage: 600 MG, UNK
     Route: 048
  9. BUMETANIDE [Concomitant]

REACTIONS (5)
  - AUTOIMMUNE THROMBOCYTOPENIA [None]
  - HAEMATOMA [None]
  - LEUKOPENIA [None]
  - NEUTROPENIA [None]
  - RENAL FAILURE [None]
